FAERS Safety Report 25060053 (Version 1)
Quarter: 2025Q1

REPORT INFORMATION
  Report Type: Spontaneous
  Country: US (occurrence: US)
  Receive Date: 20250310
  Receipt Date: 20250310
  Transmission Date: 20250408
  Serious: No
  Sender: JOHNSON AND JOHNSON
  Company Number: US-VIIV HEALTHCARE-US2025AMR012619

PATIENT
  Age: 47 Year
  Sex: Male

DRUGS (2)
  1. RILPIVIRINE [Suspect]
     Active Substance: RILPIVIRINE
     Indication: HIV infection
     Route: 065
     Dates: start: 20240711, end: 20240711
  2. CABOTEGRAVIR [Suspect]
     Active Substance: CABOTEGRAVIR
     Indication: HIV infection
     Route: 065
     Dates: start: 20240711, end: 20240711

REACTIONS (4)
  - Rash maculo-papular [Recovered/Resolved]
  - Swollen tongue [Unknown]
  - Urticaria [Unknown]
  - Myalgia [Unknown]

NARRATIVE: CASE EVENT DATE: 20240711
